APPROVED DRUG PRODUCT: NEOMYCIN AND POLYMYXIN B SULFATE
Active Ingredient: NEOMYCIN SULFATE; POLYMYXIN B SULFATE
Strength: EQ 40MG BASE/ML;200,000 UNITS/ML
Dosage Form/Route: SOLUTION;IRRIGATION
Application: A062664 | Product #001
Applicant: WATSON LABORATORIES INC
Approved: Apr 8, 1986 | RLD: No | RS: No | Type: DISCN